FAERS Safety Report 5834785-4 (Version None)
Quarter: 2008Q3

REPORT INFORMATION
  Report Type: 
  Country: None (occurrence: None)
  Receive Date: 20080804
  Receipt Date: 20080726
  Transmission Date: 20090109
  Serious: Yes (Death, Hospitalization)
  Sender: FDA-Public Use
  Company Number: 163-21880-08070547

PATIENT
  Age: 83 Year
  Sex: Female

DRUGS (3)
  1. REVLIMID [Suspect]
     Indication: MULTIPLE MYELOMA
     Dosage: 5 MG, DAILY X 21 DAYS, ORAL; 10 MG, DAILY X 21 DAYS, ORAL; 5 MG, DAILY X 21 DAYS, ORAL
     Route: 048
     Dates: start: 20070816, end: 20070901
  2. REVLIMID [Suspect]
     Indication: MULTIPLE MYELOMA
     Dosage: 5 MG, DAILY X 21 DAYS, ORAL; 10 MG, DAILY X 21 DAYS, ORAL; 5 MG, DAILY X 21 DAYS, ORAL
     Route: 048
     Dates: start: 20071108, end: 20071101
  3. REVLIMID [Suspect]
     Indication: MULTIPLE MYELOMA
     Dosage: 5 MG, DAILY X 21 DAYS, ORAL; 10 MG, DAILY X 21 DAYS, ORAL; 5 MG, DAILY X 21 DAYS, ORAL
     Route: 048
     Dates: start: 20080121, end: 20080601

REACTIONS (2)
  - FALL [None]
  - INJURY [None]
